FAERS Safety Report 21085396 (Version 1)
Quarter: 2022Q3

REPORT INFORMATION
  Report Type: Report from Study
  Country: US (occurrence: US)
  Receive Date: 20220714
  Receipt Date: 20220714
  Transmission Date: 20221027
  Serious: Yes (Hospitalization, Other)
  Sender: FDA-Public Use
  Company Number: US-ABBVIE-22K-163-4410840-00

PATIENT
  Sex: Male

DRUGS (4)
  1. SKYRIZI [Suspect]
     Active Substance: RISANKIZUMAB-RZAA
     Indication: Psoriasis
     Route: 058
  2. MODERNA COVID-19 VACCINE [Concomitant]
     Active Substance: ELASOMERAN
     Indication: COVID-19 immunisation
     Dosage: FIRST DOSE
     Route: 030
     Dates: start: 20210201, end: 20210201
  3. MODERNA COVID-19 VACCINE [Concomitant]
     Active Substance: ELASOMERAN
     Dosage: SECOND DOSE
     Route: 030
     Dates: start: 20210520, end: 20210520
  4. MODERNA COVID-19 VACCINE [Concomitant]
     Active Substance: ELASOMERAN
     Dosage: THIRD DOSE OR BOOSTER DOSE
     Route: 030
     Dates: start: 20211020, end: 20211020

REACTIONS (9)
  - Neoplasm malignant [Recovering/Resolving]
  - Lung neoplasm malignant [Recovering/Resolving]
  - Spinal cord neoplasm [Recovering/Resolving]
  - Hospitalisation [Recovering/Resolving]
  - Malaise [Recovering/Resolving]
  - Fatigue [Unknown]
  - Peripheral swelling [Recovering/Resolving]
  - Discharge [Recovering/Resolving]
  - Ulcer [Unknown]
